FAERS Safety Report 5535902-6 (Version None)
Quarter: 2007Q4

REPORT INFORMATION
  Report Type: 
  Country: None (occurrence: None)
  Receive Date: 20071206
  Receipt Date: 20071204
  Transmission Date: 20080405
  Serious: Yes (Life-Threatening)
  Sender: FDA-Public Use
  Company Number: JP-ASTRAZENECA-2007AP07092

PATIENT
  Age: 63 Year
  Sex: Male

DRUGS (4)
  1. MEROPENEM [Suspect]
     Indication: CATHETER RELATED INFECTION
     Route: 042
     Dates: start: 20070808, end: 20070813
  2. UNASYN [Suspect]
     Route: 042
     Dates: start: 20070807, end: 20070808
  3. TAXOTERE [Concomitant]
     Route: 042
     Dates: start: 20070724, end: 20070724
  4. TAXOTERE [Concomitant]
     Route: 042
     Dates: start: 20070731, end: 20070731

REACTIONS (1)
  - PSEUDOMEMBRANOUS COLITIS [None]
